FAERS Safety Report 18553316 (Version 1)
Quarter: 2020Q4

REPORT INFORMATION
  Report Type: Spontaneous
  Country: US (occurrence: US)
  Receive Date: 20201127
  Receipt Date: 20201127
  Transmission Date: 20210114
  Serious: No
  Sender: FDA-Public Use
  Company Number: US-TEVA-2020-US-1850396

PATIENT
  Sex: Female

DRUGS (2)
  1. DULOXETINE HCL [Concomitant]
     Active Substance: DULOXETINE HYDROCHLORIDE
  2. AUSTEDO [Suspect]
     Active Substance: DEUTETRABENAZINE
     Dosage: DAILY
     Route: 048

REACTIONS (4)
  - Tooth injury [Unknown]
  - Drug ineffective [Unknown]
  - Dyskinesia [Unknown]
  - Feeling hot [Unknown]
